FAERS Safety Report 21848095 (Version 1)
Quarter: 2023Q1

REPORT INFORMATION
  Report Type: Spontaneous
  Country: US (occurrence: US)
  Receive Date: 20230111
  Receipt Date: 20230111
  Transmission Date: 20230417
  Serious: Yes (Hospitalization)
  Sender: FDA-Public Use
  Company Number: US-009507513-2209USA011205

PATIENT
  Age: 81 Year
  Sex: Male

DRUGS (9)
  1. KEYTRUDA [Suspect]
     Active Substance: PEMBROLIZUMAB
     Indication: Hormone-refractory prostate cancer
     Dosage: 200 MILLIGRAM, ON DAY 1 OF EACH 21-DAY CYCLE
     Route: 042
     Dates: start: 20220222, end: 20221013
  2. KEYTRUDA [Suspect]
     Active Substance: PEMBROLIZUMAB
     Dosage: 200 MILLIGRAM, EVERY 3 WEEKS
     Route: 042
     Dates: start: 20221122
  3. PRINIVIL [Concomitant]
     Active Substance: LISINOPRIL
     Dosage: UNK
     Route: 048
  4. ATORVASTATIN [Concomitant]
     Active Substance: ATORVASTATIN
  5. CHOLECALCIFEROL [Concomitant]
     Active Substance: CHOLECALCIFEROL
  6. LEUPROLIDE ACETATE [Concomitant]
     Active Substance: LEUPROLIDE ACETATE
  7. MIRALAX [Concomitant]
     Active Substance: POLYETHYLENE GLYCOL 3350
  8. LASIX [Concomitant]
     Active Substance: FUROSEMIDE
  9. ASPIRIN [Concomitant]
     Active Substance: ASPIRIN

REACTIONS (9)
  - Colitis [Recovered/Resolved]
  - Asthenia [Unknown]
  - Balance disorder [Unknown]
  - Presyncope [Unknown]
  - Fall [Unknown]
  - Limb injury [Unknown]
  - Face injury [Unknown]
  - Feeling cold [Unknown]
  - Myalgia [Unknown]

NARRATIVE: CASE EVENT DATE: 20220101
